FAERS Safety Report 6068237-6 (Version None)
Quarter: 2009Q1

REPORT INFORMATION
  Report Type: 
  Country: None (occurrence: None)
  Receive Date: 20090206
  Receipt Date: 20090123
  Transmission Date: 20090719
  Serious: Yes (Other)
  Sender: FDA-Public Use
  Company Number: PHBS2009IT00552

PATIENT
  Age: 53 Year
  Sex: Male

DRUGS (7)
  1. CYCLOSPORINE [Interacting]
     Indication: LIVER TRANSPLANT
     Dosage: UNK
     Dates: start: 20020101
  2. CYCLOSPORINE [Interacting]
     Dosage: 50 MG, BID
  3. CYCLOSPORINE [Interacting]
     Dosage: 75 MG, BID
  4. CYCLOSPORINE [Interacting]
     Dosage: 100 MG, BID
  5. ERLOTINIB [Interacting]
     Indication: LUNG ADENOCARCINOMA
     Dosage: 150 MG DAILY
  6. CARBOPLATIN [Suspect]
     Indication: LUNG ADENOCARCINOMA
     Dosage: UNK
  7. PACLITAXEL [Suspect]
     Indication: LUNG ADENOCARCINOMA
     Dosage: UNK

REACTIONS (10)
  - DIARRHOEA [None]
  - DRUG INTERACTION [None]
  - DRUG LEVEL FLUCTUATING [None]
  - LUNG ADENOCARCINOMA STAGE IV [None]
  - METASTASES TO BONE [None]
  - METASTASES TO CENTRAL NERVOUS SYSTEM [None]
  - METASTASES TO PLEURA [None]
  - METASTASIS [None]
  - NEUTROPENIA [None]
  - SKIN TOXICITY [None]
